FAERS Safety Report 4766260-2 (Version None)
Quarter: 2005Q3

REPORT INFORMATION
  Report Type: 
  Country: None (occurrence: None)
  Receive Date: 20050912
  Receipt Date: 20050817
  Transmission Date: 20060218
  Serious: Yes (Hospitalization)
  Sender: FDA-Public Use
  Company Number: US-MERCK-0508USA03387

PATIENT
  Age: 56 Year
  Sex: Male
  Weight: 89 kg

DRUGS (8)
  1. VIOXX [Suspect]
     Indication: SPONDYLITIS
     Route: 048
     Dates: start: 20010301, end: 20040201
  2. VIOXX [Suspect]
     Indication: BACK PAIN
     Route: 048
     Dates: start: 20010301, end: 20040201
  3. TYLENOL [Concomitant]
     Indication: PAIN
     Route: 065
     Dates: start: 19900101
  4. VITAMINS (UNSPECIFIED) [Concomitant]
     Route: 065
     Dates: start: 19900101
  5. MOTRIN [Suspect]
     Indication: PAIN
     Route: 048
     Dates: start: 19900101, end: 20020501
  6. SPECTRACEF [Concomitant]
     Route: 065
     Dates: start: 20020422
  7. CLARINEX [Concomitant]
     Route: 065
     Dates: start: 20020426
  8. GUAIFENESIN [Concomitant]
     Route: 065
     Dates: start: 20020501

REACTIONS (17)
  - ACUTE MYOCARDIAL INFARCTION [None]
  - ANGINA PECTORIS [None]
  - BLOOD PRESSURE INADEQUATELY CONTROLLED [None]
  - BRONCHITIS [None]
  - CHEST DISCOMFORT [None]
  - CHEST PAIN [None]
  - CORONARY ARTERY OCCLUSION [None]
  - CORONARY ARTERY RESTENOSIS [None]
  - CORONARY ARTERY THROMBOSIS [None]
  - DIZZINESS [None]
  - DYSPEPSIA [None]
  - DYSPNOEA [None]
  - FATIGUE [None]
  - HYPOTENSION [None]
  - MYOCARDIAL INFARCTION [None]
  - MYOCARDIAL ISCHAEMIA [None]
  - SINUS BRADYCARDIA [None]
